FAERS Safety Report 19837948 (Version 1)
Quarter: 2021Q3

REPORT INFORMATION
  Report Type: Other
  Country: NG (occurrence: NG)
  Receive Date: 20210916
  Receipt Date: 20210916
  Transmission Date: 20211014
  Serious: Yes (Hospitalization)
  Sender: FDA-Public Use
  Company Number: NG-ROCHE-2908813

PATIENT
  Age: 34 Year
  Sex: Female

DRUGS (2)
  1. HERCEPTIN [Suspect]
     Active Substance: TRASTUZUMAB
     Indication: BREAST CANCER STAGE II
     Route: 042
     Dates: start: 20210210
  2. PERJETA [Suspect]
     Active Substance: PERTUZUMAB
     Indication: BREAST CANCER STAGE II
     Route: 042
     Dates: start: 20210210

REACTIONS (2)
  - Chest pain [Not Recovered/Not Resolved]
  - Dyspnoea [Not Recovered/Not Resolved]

NARRATIVE: CASE EVENT DATE: 20210909
